FAERS Safety Report 6077738-6 (Version None)
Quarter: 2009Q1

REPORT INFORMATION
  Report Type: 
  Country: None (occurrence: None)
  Receive Date: 20090213
  Receipt Date: 20090203
  Transmission Date: 20090719
  Serious: Yes (Other)
  Sender: FDA-Public Use
  Company Number: PHHY2009BR04106

PATIENT
  Sex: Female
  Weight: 93 kg

DRUGS (2)
  1. PARLODEL [Suspect]
     Indication: HYPOPHYSITIS
     Dosage: 2.5 MG
     Route: 048
  2. PARLODEL [Suspect]
     Indication: BLOOD PROLACTIN INCREASED
     Dosage: 7.5 MG (2.5 MG IN MORNING, AFTER BREAKFAST AND 1DF AT NIGHT)
     Route: 048

REACTIONS (7)
  - ANXIETY [None]
  - BLOOD PROLACTIN ABNORMAL [None]
  - BLOOD PROLACTIN INCREASED [None]
  - HEADACHE [None]
  - HYPOTHALAMO-PITUITARY DISORDER [None]
  - PAIN [None]
  - WEIGHT INCREASED [None]
